FAERS Safety Report 19062522 (Version 2)
Quarter: 2022Q1

REPORT INFORMATION
  Report Type: Spontaneous
  Country: US (occurrence: US)
  Receive Date: 20210326
  Receipt Date: 20220105
  Transmission Date: 20220423
  Serious: Yes (Life-Threatening, Hospitalization)
  Sender: FDA-Public Use
  Company Number: US-MYLANLABS-2021M1017612

PATIENT
  Age: 54 Year
  Sex: Male

DRUGS (14)
  1. APIXABAN [Suspect]
     Active Substance: APIXABAN
     Indication: Cardiogenic shock
     Dosage: 5 MILLIGRAM, BID
     Route: 065
  2. APIXABAN [Suspect]
     Active Substance: APIXABAN
     Indication: Anticoagulant therapy
  3. HEPARIN [Suspect]
     Active Substance: HEPARIN SODIUM
     Indication: Cardiogenic shock
     Dosage: UNK
     Route: 042
  4. HEPARIN [Suspect]
     Active Substance: HEPARIN SODIUM
     Indication: Anticoagulant therapy
  5. AMIODARONE [Suspect]
     Active Substance: AMIODARONE
     Indication: Atrial flutter
     Dosage: 150 MILLIGRAM
     Route: 040
  6. AMIODARONE [Suspect]
     Active Substance: AMIODARONE
     Dosage: 1MG/MINUTE; IV DRIP FOR 6 HOURS
     Route: 042
  7. AMIODARONE [Suspect]
     Active Substance: AMIODARONE
     Dosage: 0.5MG/MINUTE; IV DRIP
     Route: 042
  8. AMIODARONE [Suspect]
     Active Substance: AMIODARONE
     Indication: Atrial flutter
     Dosage: UNK
     Route: 048
  9. CLOPIDOGREL [Suspect]
     Active Substance: CLOPIDOGREL BISULFATE
     Indication: Cardiogenic shock
     Dosage: 75 MILLIGRAM, QD
     Route: 065
  10. CLOPIDOGREL [Suspect]
     Active Substance: CLOPIDOGREL BISULFATE
     Indication: Antiplatelet therapy
  11. ASPIRIN [Suspect]
     Active Substance: ASPIRIN
     Indication: Cardiogenic shock
     Dosage: 81 MILLIGRAM, QD
     Route: 065
  12. ASPIRIN [Suspect]
     Active Substance: ASPIRIN
     Indication: Antiplatelet therapy
  13. MILRINONE [Concomitant]
     Active Substance: MILRINONE
     Indication: Cardiogenic shock
     Dosage: UNK
     Route: 042
  14. NOREPINEPHRINE [Concomitant]
     Active Substance: NOREPINEPHRINE
     Indication: Cardiogenic shock
     Dosage: UNK
     Route: 041

REACTIONS (5)
  - Pericardial haemorrhage [Recovered/Resolved]
  - Nervous system disorder [Recovered/Resolved]
  - Cardiogenic shock [Recovered/Resolved]
  - Condition aggravated [Recovered/Resolved]
  - Drug interaction [Recovered/Resolved]
